FAERS Safety Report 16996609 (Version 2)
Quarter: 2021Q1

REPORT INFORMATION
  Report Type: Report from Study
  Country: US (occurrence: US)
  Receive Date: 20191105
  Receipt Date: 20210115
  Transmission Date: 20210419
  Serious: No
  Sender: FDA-Public Use
  Company Number: US-SA-2019SA305958

PATIENT
  Age: 88 Year
  Sex: Male

DRUGS (12)
  1. PREDNISONE. [Concomitant]
     Active Substance: PREDNISONE
  2. OMEPRAZOLE. [Concomitant]
     Active Substance: OMEPRAZOLE
  3. TACROLIMUS. [Concomitant]
     Active Substance: TACROLIMUS
  4. DUPILUMAB [Suspect]
     Active Substance: DUPILUMAB
     Indication: DERMATITIS ATOPIC
     Dosage: 300 MG, QOW
     Route: 058
     Dates: start: 20191104, end: 20200323
  5. LUMIGAN [Concomitant]
     Active Substance: BIMATOPROST
  6. BETAMETHASONE DIPROPIONATE. [Concomitant]
     Active Substance: BETAMETHASONE DIPROPIONATE
  7. FISH OIL [Concomitant]
     Active Substance: FISH OIL
  8. DUPILUMAB [Suspect]
     Active Substance: DUPILUMAB
     Indication: NEURODERMATITIS
     Dosage: 600 MG, 1X
     Route: 058
     Dates: start: 20191021, end: 20191021
  9. MULTIVITAMINS [VITAMINS NOS] [Concomitant]
     Active Substance: VITAMINS
  10. LOSARTAN POTASSIUM. [Concomitant]
     Active Substance: LOSARTAN POTASSIUM
  11. SIMVASTATIN. [Concomitant]
     Active Substance: SIMVASTATIN
  12. TRIAMCINOLONE ACETONIDE. [Concomitant]
     Active Substance: TRIAMCINOLONE ACETONIDE

REACTIONS (5)
  - Dry skin [Unknown]
  - Eye disorder [Unknown]
  - Rebound eczema [Not Recovered/Not Resolved]
  - Alopecia [Unknown]
  - Skin exfoliation [Unknown]

NARRATIVE: CASE EVENT DATE: 2020
